FAERS Safety Report 9022408 (Version 2)
Quarter: 2013Q1

REPORT INFORMATION
  Report Type: Spontaneous
  Country: SA (occurrence: SA)
  Receive Date: 20130118
  Receipt Date: 20130206
  Transmission Date: 20140127
  Serious: Yes (Other)
  Sender: FDA-Public Use
  Company Number: SA-JNJFOC-20130108106

PATIENT
  Sex: 0

DRUGS (4)
  1. FENTANYL CITRATE [Suspect]
     Indication: ANAESTHESIA
     Route: 065
  2. FENTANYL CITRATE [Suspect]
     Indication: ANALGESIC THERAPY
     Route: 065
  3. TRAMADOL [Suspect]
     Indication: ANAESTHESIA
     Route: 065
  4. TRAMADOL [Suspect]
     Indication: ANALGESIC THERAPY
     Route: 065

REACTIONS (5)
  - Oxygen saturation decreased [Unknown]
  - Nausea [Unknown]
  - Vomiting [Unknown]
  - Headache [Unknown]
  - Dizziness [Unknown]
